FAERS Safety Report 10335464 (Version 2)
Quarter: 2015Q4

REPORT INFORMATION
  Report Type: Spontaneous
  Country: JP (occurrence: JP)
  Receive Date: 20140723
  Receipt Date: 20151030
  Transmission Date: 20160304
  Serious: Yes (Death, Hospitalization)
  Sender: FDA-Public Use
  Company Number: JP-SA-2014SA095169

PATIENT
  Age: 76 Year
  Sex: Male
  Weight: 59.8 kg

DRUGS (5)
  1. DEXAMETHASONE. [Suspect]
     Active Substance: DEXAMETHASONE
     Indication: PROSTATE CANCER
     Route: 065
     Dates: start: 201309
  2. DOCETAXEL. [Suspect]
     Active Substance: DOCETAXEL
     Indication: PROSTATE CANCER
     Route: 065
     Dates: start: 201309
  3. GOSERELIN ACETATE [Concomitant]
     Active Substance: GOSERELIN ACETATE
     Indication: PROSTATE CANCER
  4. DOCETAXEL. [Suspect]
     Active Substance: DOCETAXEL
     Indication: PROSTATE CANCER
     Route: 065
     Dates: start: 201312
  5. BICALUTAMIDE. [Concomitant]
     Active Substance: BICALUTAMIDE
     Indication: PROSTATE CANCER

REACTIONS (13)
  - Blood pressure decreased [Fatal]
  - Interstitial lung disease [Fatal]
  - C-reactive protein increased [Fatal]
  - Pyrexia [Fatal]
  - Respiratory distress [Fatal]
  - Pneumocystis jirovecii pneumonia [Fatal]
  - Blood urea increased [Fatal]
  - Rales [Fatal]
  - Blood lactate dehydrogenase increased [Fatal]
  - Blood alkaline phosphatase increased [Fatal]
  - Dyspnoea [Fatal]
  - Computerised tomogram thorax abnormal [Fatal]
  - Respiratory failure [Fatal]

NARRATIVE: CASE EVENT DATE: 201312
